FAERS Safety Report 13064217 (Version 1)
Quarter: 2016Q4

REPORT INFORMATION
  Report Type: Spontaneous
  Country: IT (occurrence: IT)
  Receive Date: 20161227
  Receipt Date: 20161227
  Transmission Date: 20170207
  Serious: Yes (Other)
  Sender: FDA-Public Use
  Company Number: PHHY2016IT177255

PATIENT
  Age: 49 Year
  Sex: Female

DRUGS (1)
  1. VOTRIENT [Suspect]
     Active Substance: PAZOPANIB HYDROCHLORIDE
     Indication: ALVEOLAR SOFT PART SARCOMA
     Dosage: 800 MG, QD
     Route: 048
     Dates: start: 20140606, end: 20150907

REACTIONS (3)
  - Hyperamylasaemia [Recovering/Resolving]
  - Hyperlipasaemia [Recovering/Resolving]
  - Azotaemia [Recovering/Resolving]

NARRATIVE: CASE EVENT DATE: 20150907
